FAERS Safety Report 18731574 (Version 2)
Quarter: 2021Q1

REPORT INFORMATION
  Report Type: Spontaneous
  Country: MX (occurrence: MX)
  Receive Date: 20210112
  Receipt Date: 20210113
  Transmission Date: 20210419
  Serious: Yes (Hospitalization, Other)
  Sender: FDA-Public Use
  Company Number: NVSC2021MX005795

PATIENT
  Age: 63 Year
  Sex: Male

DRUGS (1)
  1. METFORMIN [Suspect]
     Active Substance: METFORMIN HYDROCHLORIDE
     Indication: PRODUCT USED FOR UNKNOWN INDICATION
     Dosage: UNK
     Route: 065

REACTIONS (11)
  - Bradycardia [Unknown]
  - Vomiting [Recovered/Resolved]
  - Cardiac arrest [Unknown]
  - Renal failure [Unknown]
  - Acute kidney injury [Unknown]
  - Nausea [Recovered/Resolved]
  - Haemodynamic instability [Unknown]
  - Lactic acidosis [Recovered/Resolved]
  - Abdominal pain [Recovered/Resolved]
  - Metabolic acidosis [Unknown]
  - Blood creatinine increased [Unknown]
